FAERS Safety Report 8111752-1 (Version None)
Quarter: 2012Q1

REPORT INFORMATION
  Report Type: 
  Country: None (occurrence: None)
  Receive Date: 20120131
  Receipt Date: 20120124
  Transmission Date: 20120608
  Serious: Yes (Hospitalization)
  Sender: FDA-Public Use
  Company Number: TRP_07745_2011

PATIENT
  Age: 28 Year
  Sex: Female

DRUGS (13)
  1. WELLBUTRIN [Concomitant]
  2. TRAZODONE HCL [Concomitant]
  3. HYDROCODONE BITARTRATE [Concomitant]
  4. ROXICODONE [Concomitant]
  5. RIBAVIRIN [Suspect]
     Indication: HEPATITIS C
     Dosage: 400 MILLIGRAM/DAY, 400 MG
     Route: 048
     Dates: start: 20110511, end: 20110512
  6. PEGASYS [Suspect]
     Indication: HEPATITIS C
     Dosage: 1 IN 1 WK, SUBCUTANEOUS
     Route: 058
     Dates: start: 20110511, end: 20110511
  7. MARIJUANA [Concomitant]
  8. SYMBICORT [Concomitant]
  9. LORTAB [Concomitant]
  10. SUBOXONE [Concomitant]
  11. PROZAC [Concomitant]
  12. MORPHINE [Concomitant]
  13. SINGULAIR [Concomitant]

REACTIONS (5)
  - ASTHMA [None]
  - VOMITING [None]
  - DRUG ABUSE [None]
  - DEATH OF RELATIVE [None]
  - MATERNAL EXPOSURE DURING PREGNANCY [None]
